FAERS Safety Report 15964472 (Version 1)
Quarter: 2019Q1

REPORT INFORMATION
  Report Type: Spontaneous
  Country: FR (occurrence: FR)
  Receive Date: 20190215
  Receipt Date: 20190215
  Transmission Date: 20190417
  Serious: Yes (Other)
  Sender: FDA-Public Use
  Company Number: FR-TEVA-2019-FR-1010164

PATIENT
  Sex: Female
  Weight: 102 kg

DRUGS (16)
  1. CISATRACURIUM. [Suspect]
     Active Substance: CISATRACURIUM
     Indication: TUMOUR EXCISION
     Route: 042
     Dates: start: 20180924, end: 20180924
  2. SUFENTANIL [Suspect]
     Active Substance: SUFENTANIL
     Indication: TUMOUR EXCISION
     Route: 065
     Dates: start: 20180924, end: 20180924
  3. PERJETA [Suspect]
     Active Substance: PERTUZUMAB
     Indication: BREAST CANCER METASTATIC
     Route: 042
     Dates: start: 201707
  4. LETROZOLE. [Suspect]
     Active Substance: LETROZOLE
     Indication: BREAST CANCER METASTATIC
     Dosage: 1 DOSAGE FORMS DAILY;
     Route: 048
     Dates: start: 201801, end: 20181106
  5. PROPOFOL. [Suspect]
     Active Substance: PROPOFOL
     Indication: GENERAL ANAESTHESIA
     Route: 042
     Dates: start: 20180924, end: 20180924
  6. DROPERIDOL. [Suspect]
     Active Substance: DROPERIDOL
     Indication: TUMOUR EXCISION
     Route: 042
     Dates: start: 20180924, end: 20180924
  7. MORPHINE [Suspect]
     Active Substance: MORPHINE
     Indication: TUMOUR EXCISION
     Route: 042
     Dates: start: 20180924, end: 20180924
  8. LYTOS [Suspect]
     Active Substance: CLODRONATE DISODIUM
     Indication: METASTASES TO BONE
     Dosage: 2 DOSAGE FORMS DAILY;
     Route: 048
  9. DEXAMETHASONE. [Suspect]
     Active Substance: DEXAMETHASONE
     Indication: TUMOUR EXCISION
     Route: 065
     Dates: start: 20180924, end: 20180924
  10. KETOPROFENE [Suspect]
     Active Substance: KETOPROFEN
     Indication: TUMOUR EXCISION
     Route: 042
     Dates: start: 20180924, end: 20180924
  11. NEFOPAM (CHLORHYDRATE DE) [Suspect]
     Active Substance: NEFOPAM HYDROCHLORIDE
     Indication: TUMOUR EXCISION
     Route: 042
     Dates: start: 20180924, end: 20180924
  12. ROPIVACAINE (ROPIVACAINE) [Suspect]
     Active Substance: ROPIVACAINE
     Indication: LOCAL ANAESTHESIA
     Route: 065
     Dates: start: 20180924, end: 20180924
  13. ENANTONE LP [Suspect]
     Active Substance: LEUPROLIDE ACETATE
     Indication: BREAST CANCER METASTATIC
     Route: 065
     Dates: start: 201707, end: 201809
  14. LIDOCAINE. [Suspect]
     Active Substance: LIDOCAINE
     Indication: TUMOUR EXCISION
     Route: 065
     Dates: start: 20180924, end: 20180924
  15. HERCEPTIN [Suspect]
     Active Substance: TRASTUZUMAB
     Indication: BREAST CANCER METASTATIC
     Route: 058
     Dates: start: 201707
  16. PARACETAMOL [Suspect]
     Active Substance: ACETAMINOPHEN
     Indication: TUMOUR EXCISION
     Route: 042
     Dates: start: 20180924, end: 20180924

REACTIONS (1)
  - Oligohydramnios [Not Recovered/Not Resolved]

NARRATIVE: CASE EVENT DATE: 201811
